FAERS Safety Report 9420027 (Version 2)
Quarter: 2013Q3

REPORT INFORMATION
  Report Type: Report from Study
  Country: DE (occurrence: DE)
  Receive Date: 20130725
  Receipt Date: 20130731
  Transmission Date: 20140515
  Serious: Yes (Hospitalization)
  Sender: FDA-Public Use
  Company Number: DE-UCBSA-092866

PATIENT
  Age: 76 Year
  Sex: Female
  Weight: 68 kg

DRUGS (7)
  1. NEUPRO [Suspect]
     Indication: PARKINSON^S DISEASE
     Route: 062
     Dates: start: 20120726, end: 20120802
  2. NEUPRO [Suspect]
     Indication: PARKINSON^S DISEASE
     Route: 062
     Dates: start: 20120803, end: 20130204
  3. NEUPRO [Suspect]
     Indication: PARKINSON^S DISEASE
     Route: 062
     Dates: start: 20130205, end: 20130514
  4. L - DOPA [Concomitant]
     Indication: PARKINSON^S DISEASE
     Dates: start: 20110118, end: 20120124
  5. L - DOPA [Concomitant]
     Indication: PARKINSON^S DISEASE
     Dates: start: 20120125, end: 20120503
  6. L - DOPA [Concomitant]
     Indication: PARKINSON^S DISEASE
     Dates: start: 20120503
  7. CLARIUM [Concomitant]
     Indication: PARKINSON^S DISEASE
     Dates: start: 20130514

REACTIONS (2)
  - Device dislocation [Recovered/Resolved]
  - Parkinson^s disease [Recovering/Resolving]
